FAERS Safety Report 12170386 (Version 1)
Quarter: 2016Q1

REPORT INFORMATION
  Report Type: Spontaneous
  Country: US (occurrence: US)
  Receive Date: 20160311
  Receipt Date: 20160311
  Transmission Date: 20160526
  Serious: No
  Sender: FDA-Public Use
  Company Number: US-TEVA-617596USA

PATIENT
  Age: 61 Year
  Sex: Female

DRUGS (4)
  1. VITAMIN D [Concomitant]
     Active Substance: CHOLECALCIFEROL
  2. CALCIUM [Concomitant]
     Active Substance: CALCIUM
  3. OMEPRAZOLE. [Concomitant]
     Active Substance: OMEPRAZOLE
  4. RISEDRONATE SODIUM DELAYED-RELEASE [Suspect]
     Active Substance: RISEDRONATE SODIUM
     Indication: OSTEOPENIA
     Route: 048

REACTIONS (2)
  - Frequent bowel movements [Unknown]
  - Back pain [Recovering/Resolving]
